FAERS Safety Report 14138032 (Version 4)
Quarter: 2019Q1

REPORT INFORMATION
  Report Type: Spontaneous
  Country: CA (occurrence: CA)
  Receive Date: 20171027
  Receipt Date: 20190301
  Transmission Date: 20190417
  Serious: Yes (Hospitalization, Other)
  Sender: FDA-Public Use
  Company Number: CA-PFIZER INC-2017458448

PATIENT
  Age: 76 Year
  Sex: Male

DRUGS (4)
  1. MEZAVANT [Suspect]
     Active Substance: MESALAMINE
     Dosage: UNK, 2X/DAY
     Dates: start: 2016
  2. METHOTREXATE SODIUM. [Suspect]
     Active Substance: METHOTREXATE SODIUM
     Dosage: 12.5 MG, WEEKLY
     Route: 058
     Dates: start: 2016
  3. SALOFALK /00000301/ [Suspect]
     Active Substance: MESALAMINE
     Dosage: UNK
  4. PREDNISONE. [Suspect]
     Active Substance: PREDNISONE
     Dosage: UNK

REACTIONS (10)
  - Drug ineffective [Unknown]
  - Obstruction [Unknown]
  - Mucous stools [Unknown]
  - Proctalgia [Unknown]
  - Frequent bowel movements [Unknown]
  - Abdominal pain [Unknown]
  - Haematochezia [Unknown]
  - Colitis ulcerative [Not Recovered/Not Resolved]
  - Fatigue [Not Recovered/Not Resolved]
  - Loss of personal independence in daily activities [Unknown]

NARRATIVE: CASE EVENT DATE: 2016
